FAERS Safety Report 8131982-2 (Version None)
Quarter: 2012Q1

REPORT INFORMATION
  Report Type: 
  Country: None (occurrence: None)
  Receive Date: 20120208
  Receipt Date: 20120201
  Transmission Date: 20120608
  Serious: Yes (Other)
  Sender: FDA-Public Use
  Company Number: AUR-APL-2012-00197

PATIENT
  Weight: 136.0791 kg

DRUGS (8)
  1. HYDROCHLOROTHIAZIDE [Concomitant]
  2. DIOVAN [Concomitant]
  3. CRESTOR [Concomitant]
  4. METFORMIN HCL [Suspect]
     Indication: DIABETES MELLITUS
     Dosage: 2000 MG (1000 MG, 2 IN 1 D), ORAL
     Route: 048
     Dates: start: 20120102, end: 20120103
  5. SINGULAIR [Concomitant]
  6. CLARINEX [Concomitant]
  7. SYNTHROID [Concomitant]
  8. NASONEX [Concomitant]

REACTIONS (7)
  - PAIN [None]
  - ORGAN FAILURE [None]
  - FEELING ABNORMAL [None]
  - PRODUCT SUBSTITUTION ISSUE [None]
  - PRODUCT QUALITY ISSUE [None]
  - ABASIA [None]
  - RESTLESSNESS [None]
